FAERS Safety Report 24250986 (Version 1)
Quarter: 2024Q3

REPORT INFORMATION
  Report Type: Spontaneous
  Country: US (occurrence: None)
  Receive Date: 20240825
  Receipt Date: 20240825
  Transmission Date: 20241017
  Serious: Yes (Life-Threatening)
  Sender: Public
  Company Number: None

PATIENT
  Age: 30 Year
  Sex: Female
  Weight: 60.75 kg

DRUGS (2)
  1. FINASTERIDE [Suspect]
     Active Substance: FINASTERIDE
     Dates: start: 20240606, end: 20240614
  2. MINOXIDIL [Concomitant]
     Active Substance: MINOXIDIL

REACTIONS (2)
  - Depression [None]
  - Loss of personal independence in daily activities [None]

NARRATIVE: CASE EVENT DATE: 20240610
